FAERS Safety Report 24652366 (Version 2)
Quarter: 2025Q4

REPORT INFORMATION
  Report Type: Spontaneous
  Country: US (occurrence: US)
  Receive Date: 20241122
  Receipt Date: 20251121
  Transmission Date: 20260117
  Serious: No
  Sender: ALVOGEN
  Company Number: US-ALVOGEN-2024095205

PATIENT
  Sex: Female

DRUGS (3)
  1. TERIPARATIDE [Suspect]
     Active Substance: TERIPARATIDE
     Indication: Supplementation therapy
     Dosage: TAKING OVER A YEAR?PEN 1
     Route: 058
     Dates: start: 2023
  2. TERIPARATIDE [Suspect]
     Active Substance: TERIPARATIDE
     Indication: Supplementation therapy
     Dosage: EXPIRATION DATE: JUN-2026?INJECTED 27 DOSES?14TH PEN
     Route: 058
     Dates: start: 20240629
  3. TERIPARATIDE [Suspect]
     Active Substance: TERIPARATIDE
     Indication: Supplementation therapy
     Dosage: EXPIRATION DATE: NOV-2025?INJECTED 3 WEEKS
     Route: 058
     Dates: start: 20250503, end: 20250524

REACTIONS (7)
  - Injection site haemorrhage [Unknown]
  - Device malfunction [Unknown]
  - Device operational issue [Unknown]
  - Incorrect dose administered [Unknown]
  - Product dose omission issue [Unknown]
  - Product use issue [Unknown]
  - Off label use [Unknown]

NARRATIVE: CASE EVENT DATE: 20240101
